FAERS Safety Report 23849614 (Version 1)
Quarter: 2024Q2

REPORT INFORMATION
  Report Type: Other
  Country: CA (occurrence: CA)
  Receive Date: 20240513
  Receipt Date: 20240513
  Transmission Date: 20240716
  Serious: Yes (Other)
  Sender: FDA-Public Use
  Company Number: CA-BIOCON BIOLOGICS LIMITED-BBL2024003142

PATIENT

DRUGS (1)
  1. OGIVRI [Suspect]
     Active Substance: TRASTUZUMAB-DKST
     Indication: Gallbladder adenocarcinoma
     Dosage: UNK
     Route: 065

REACTIONS (3)
  - Gallbladder adenocarcinoma [Unknown]
  - Disease progression [Unknown]
  - Palliative care [Unknown]
